FAERS Safety Report 10748525 (Version 1)
Quarter: 2015Q1

REPORT INFORMATION
  Report Type: Report from Study
  Country: US (occurrence: None)
  Receive Date: 20150120
  Receipt Date: 20150120
  Transmission Date: 20150721
  Serious: Yes (Other)
  Sender: FDA-Public Use
  Company Number: AEGR000868

PATIENT
  Age: 65 Year
  Sex: Female
  Weight: 78 kg

DRUGS (13)
  1. SLO-NIACIN (NICOTINIC ACID) [Concomitant]
  2. INDAPAMIDE (INDAPAMIDE) [Concomitant]
     Active Substance: INDAPAMIDE
  3. LASIX [Concomitant]
     Active Substance: FUROSEMIDE
  4. ZETIA [Concomitant]
     Active Substance: EZETIMIBE
  5. PRISTIQ (DESVENLAFAXINE SUCCINATE) [Concomitant]
     Active Substance: DESVENLAFAXINE SUCCINATE
  6. JUXTAPID [Suspect]
     Active Substance: LOMITAPIDE MESYLATE
     Indication: TYPE IIA HYPERLIPIDAEMIA
     Route: 048
     Dates: start: 20140923, end: 20141029
  7. ALDACTONE [Concomitant]
     Active Substance: SPIRONOLACTONE
  8. TANZEUM (ALBIGLUTIDE) [Concomitant]
  9. PRAVACHOL (PRAVASTATIN SODIUM) [Concomitant]
  10. JANUVIA [Concomitant]
     Active Substance: SITAGLIPTIN PHOSPHATE
  11. VIVELLE (ESTRADIOL) [Concomitant]
  12. AZOR (AMLODIPINE BESILATE, OLMESARTAN MEDOXOMIL) [Concomitant]
  13. VITAMIN D (COLECALCIFEROL) [Concomitant]

REACTIONS (4)
  - Nausea [None]
  - Hepatic enzyme increased [None]
  - Drug ineffective [None]
  - Therapy cessation [None]

NARRATIVE: CASE EVENT DATE: 2014
